FAERS Safety Report 24314346 (Version 1)
Quarter: 2024Q3

REPORT INFORMATION
  Report Type: Report from Study
  Country: US (occurrence: US)
  Receive Date: 20240913
  Receipt Date: 20240913
  Transmission Date: 20241016
  Serious: Yes (Hospitalization)
  Sender: ABBVIE
  Company Number: US-ABBVIE-5917236

PATIENT
  Sex: Female

DRUGS (1)
  1. HUMIRA [Suspect]
     Active Substance: ADALIMUMAB
     Indication: Crohn^s disease
     Dosage: CITRATE FREE
     Route: 058
     Dates: start: 2014

REACTIONS (7)
  - Atrial fibrillation [Unknown]
  - Supraventricular tachycardia [Unknown]
  - Rash [Recovered/Resolved]
  - Flatulence [Unknown]
  - Inflammation [Unknown]
  - Polyp [Unknown]
  - Heart rate increased [Unknown]
